FAERS Safety Report 5873804-6 (Version None)
Quarter: 2008Q3

REPORT INFORMATION
  Report Type: 
  Country: None (occurrence: None)
  Receive Date: 20080903
  Receipt Date: 20080903
  Transmission Date: 20090109
  Serious: Yes (Other)
  Sender: FDA-Public Use
  Company Number: None

PATIENT
  Age: 30 Year
  Sex: Female
  Weight: 58.9676 kg

DRUGS (4)
  1. BUPROPION HCL [Suspect]
     Indication: CHRONIC FATIGUE SYNDROME
     Dosage: 100MG/DAY FOR 3 DAYS 1X/DAY PO
     Route: 048
     Dates: start: 20080828, end: 20080902
  2. LORTAB [Concomitant]
  3. NUVARING [Concomitant]
  4. LIDOCAINE [Concomitant]

REACTIONS (6)
  - AGGRESSION [None]
  - ANXIETY [None]
  - CRYING [None]
  - DEPRESSION [None]
  - INSOMNIA [None]
  - IRRITABILITY [None]
